FAERS Safety Report 12391050 (Version 1)
Quarter: 2016Q2

REPORT INFORMATION
  Report Type: Report from Study
  Country: US (occurrence: US)
  Receive Date: 20160520
  Receipt Date: 20160520
  Transmission Date: 20160815
  Serious: Yes (Other)
  Sender: FDA-Public Use
  Company Number: US-ACTELION-A-NJ2015-128299

PATIENT
  Age: 73 Year
  Sex: Female

DRUGS (1)
  1. MACITENTAN [Suspect]
     Active Substance: MACITENTAN
     Indication: PULMONARY ARTERIAL HYPERTENSION
     Dosage: 10 MG, QD
     Route: 048
     Dates: start: 20151102

REACTIONS (7)
  - Gait disturbance [Unknown]
  - Heart rate decreased [Unknown]
  - Labile blood pressure [Unknown]
  - Dizziness [Unknown]
  - Blood pressure increased [Unknown]
  - Nasopharyngitis [Unknown]
  - Balance disorder [Unknown]

NARRATIVE: CASE EVENT DATE: 201603
